FAERS Safety Report 12620075 (Version 1)
Quarter: 2016Q3

REPORT INFORMATION
  Report Type: Spontaneous
  Country: DE (occurrence: DE)
  Receive Date: 20160803
  Receipt Date: 20160803
  Transmission Date: 20161109
  Serious: Yes (Hospitalization)
  Sender: FDA-Public Use
  Company Number: DE-TEVA-678252GER

PATIENT
  Age: 38 Year
  Sex: Male

DRUGS (1)
  1. SALBUTAMOL-RATIOPHARM DOSIERAEROSOL [Suspect]
     Active Substance: ALBUTEROL
     Route: 055
     Dates: start: 2015

REACTIONS (1)
  - Pulmonary thrombosis [Unknown]

NARRATIVE: CASE EVENT DATE: 2016
